FAERS Safety Report 7298353-2 (Version None)
Quarter: 2011Q1

REPORT INFORMATION
  Report Type: 
  Country: None (occurrence: None)
  Receive Date: 20110217
  Receipt Date: 20110202
  Transmission Date: 20110831
  Serious: Yes (Other)
  Sender: FDA-Public Use
  Company Number: JP-AMGEN-JPNSP2010005044

PATIENT
  Age: 59 Year
  Sex: Female
  Weight: 36 kg

DRUGS (11)
  1. SENNOSIDE A [Concomitant]
     Dosage: 12 MG, 2X/DAY
     Route: 048
     Dates: start: 20100329
  2. ENBREL [Suspect]
     Dosage: 25 MG 1 TIME PER 1 WK
     Route: 058
     Dates: start: 20100329, end: 20100512
  3. FOLIAMIN [Concomitant]
     Indication: PROPHYLAXIS
     Dosage: 5 MG, WEEKLY
     Route: 048
     Dates: start: 20100329, end: 20100526
  4. ENBREL [Suspect]
     Dosage: 25 MG 1 TIMES PER 10 DAYS
     Route: 058
     Dates: start: 20100607
  5. ENBREL [Suspect]
     Dosage: 25 MG 1 TIMES PER 1 WK
     Route: 058
     Dates: start: 20080801, end: 20091001
  6. HERBAL PREPARATION [Concomitant]
     Dosage: 2.5 G, 2X/DAY
     Route: 048
     Dates: start: 20100329
  7. RHEUMATREX [Concomitant]
     Indication: RHEUMATOID ARTHRITIS
     Dosage: 6 MG, WEEKLY
     Route: 048
     Dates: start: 20100329, end: 20100526
  8. TEPRENONE [Concomitant]
     Indication: GASTRITIS
     Dosage: 50 MG, 3X/DAY
     Route: 048
     Dates: start: 20100329
  9. ENBREL [Suspect]
     Indication: RHEUMATOID ARTHRITIS
     Dosage: 25 MG 1 TIMES PER 1 WK
     Route: 058
     Dates: start: 20080801
  10. ENBREL [Suspect]
     Dosage: 25 MG 1 TIME PER 10 DAYS
     Route: 058
     Dates: start: 20100513, end: 20100526
  11. MAGNESIUM OXIDE HEAVY [Concomitant]
     Indication: CONSTIPATION
     Dosage: 500 MG, 3X/DAY
     Route: 048
     Dates: start: 20100329

REACTIONS (4)
  - LUPUS-LIKE SYNDROME [None]
  - RHEUMATOID ARTHRITIS [None]
  - CONDITION AGGRAVATED [None]
  - UNEVALUABLE EVENT [None]
